FAERS Safety Report 11271806 (Version 2)
Quarter: 2015Q3

REPORT INFORMATION
  Report Type: Report from Study
  Country: DE (occurrence: DE)
  Receive Date: 20150715
  Receipt Date: 20150812
  Transmission Date: 20151125
  Serious: Yes (Hospitalization)
  Sender: FDA-Public Use
  Company Number: DE-ROCHE-ITM201309IM004128

PATIENT
  Age: 73 Year
  Sex: Male
  Weight: 85 kg

DRUGS (11)
  1. PIRFENIDONE [Interacting]
     Active Substance: PIRFENIDONE
     Route: 048
     Dates: start: 20140328, end: 20140811
  2. OXYGEN. [Concomitant]
     Active Substance: OXYGEN
     Indication: IDIOPATHIC PULMONARY FIBROSIS
     Dosage: UNIT DOSE:  LITERS/MINUTE
     Route: 065
     Dates: end: 20150211
  3. PIRFENIDONE [Suspect]
     Active Substance: PIRFENIDONE
     Indication: IDIOPATHIC PULMONARY FIBROSIS
     Route: 048
     Dates: start: 20130207
  4. PIRFENIDONE [Interacting]
     Active Substance: PIRFENIDONE
     Route: 048
     Dates: start: 20130919
  5. PIRFENIDONE [Interacting]
     Active Substance: PIRFENIDONE
     Route: 048
     Dates: start: 20130920
  6. RAMIPRIL. [Concomitant]
     Active Substance: RAMIPRIL
     Indication: HYPERTENSION
     Route: 065
     Dates: end: 20150211
  7. PANTOPRAZOLE [Concomitant]
     Active Substance: PANTOPRAZOLE SODIUM
     Indication: GASTRIC ULCER
     Route: 065
     Dates: start: 201403, end: 20150211
  8. AMOXICILLIN. [Concomitant]
     Active Substance: AMOXICILLIN
     Indication: GASTRIC ULCER
     Route: 065
     Dates: start: 2013
  9. CLARITHROMYCIN. [Concomitant]
     Active Substance: CLARITHROMYCIN
     Indication: GASTRIC ULCER
     Route: 065
     Dates: start: 2013
  10. PROTON PUMP INHIBITORS [Concomitant]
     Active Substance: UNSPECIFIED INGREDIENT
     Indication: GASTRIC ULCER
     Route: 065
     Dates: start: 2013
  11. PIRFENIDONE [Interacting]
     Active Substance: PIRFENIDONE
     Route: 048
     Dates: start: 20130921

REACTIONS (7)
  - Vomiting [Recovered/Resolved]
  - Dyspnoea [Not Recovered/Not Resolved]
  - Fatigue [Recovered/Resolved]
  - Gastric ulcer [Recovered/Resolved]
  - Abdominal discomfort [Recovered/Resolved]
  - Weight decreased [Not Recovered/Not Resolved]
  - Nausea [Recovered/Resolved]

NARRATIVE: CASE EVENT DATE: 20130207
